FAERS Safety Report 8554233-3 (Version None)
Quarter: 2012Q3

REPORT INFORMATION
  Report Type: 
  Country: None (occurrence: None)
  Receive Date: 20120731
  Receipt Date: 20120706
  Transmission Date: 20120928
  Serious: No
  Sender: FDA-Public Use
  Company Number: US-009507513-1207USA000640

PATIENT

DRUGS (2)
  1. IMPLANON [Suspect]
     Dosage: UNK
     Route: 059
     Dates: start: 20120424
  2. IMPLANON [Suspect]
     Dosage: UNK
     Route: 059
     Dates: end: 20120424

REACTIONS (4)
  - APPLICATION SITE SWELLING [None]
  - APPLICATION SITE PRURITUS [None]
  - APPLICATION SITE ERYTHEMA [None]
  - PHYSICAL EXAMINATION NORMAL [None]
